FAERS Safety Report 16026465 (Version 1)
Quarter: 2019Q1

REPORT INFORMATION
  Report Type: Spontaneous
  Country: US (occurrence: US)
  Receive Date: 20190302
  Receipt Date: 20190302
  Transmission Date: 20190418
  Serious: No
  Sender: FDA-Public Use
  Company Number: US-NOVOPROD-632906

PATIENT
  Age: 57 Year
  Sex: Female

DRUGS (3)
  1. VICTOZA [Suspect]
     Active Substance: LIRAGLUTIDE
     Dosage: 1.8 MG, BID
     Route: 058
  2. LANTUS [Concomitant]
     Active Substance: INSULIN GLARGINE
  3. VICTOZA [Suspect]
     Active Substance: LIRAGLUTIDE
     Indication: TYPE 2 DIABETES MELLITUS
     Dosage: 0.6 MG, UNK
     Route: 058
     Dates: start: 20160712

REACTIONS (6)
  - Ill-defined disorder [Recovering/Resolving]
  - Diarrhoea [Recovering/Resolving]
  - Product use issue [Not Recovered/Not Resolved]
  - Weight decreased [Recovered/Resolved]
  - Eructation [Recovering/Resolving]
  - Nausea [Recovering/Resolving]
